FAERS Safety Report 16557513 (Version 2)
Quarter: 2019Q3

REPORT INFORMATION
  Report Type: Spontaneous
  Country: US (occurrence: US)
  Receive Date: 20190711
  Receipt Date: 20190726
  Transmission Date: 20191004
  Serious: Yes (Other)
  Sender: FDA-Public Use
  Company Number: US-HIKMA PHARMACEUTICALS USA INC.-US-H14001-19-04209

PATIENT
  Age: 9 Year
  Sex: Female

DRUGS (4)
  1. FLUTICASONE. [Interacting]
     Active Substance: FLUTICASONE
     Indication: RESPIRATORY DISORDER
  2. FLUTICASONE. [Interacting]
     Active Substance: FLUTICASONE
     Indication: MENINGITIS COCCIDIOIDES
  3. FLUCONAZOLE. [Suspect]
     Active Substance: FLUCONAZOLE
     Indication: MENINGITIS COCCIDIOIDES
     Route: 065
  4. FLUCONAZOLE. [Interacting]
     Active Substance: FLUCONAZOLE
     Indication: RESPIRATORY DISORDER

REACTIONS (7)
  - Cushingoid [Recovered/Resolved]
  - Femur fracture [Unknown]
  - Bone density decreased [Recovered/Resolved]
  - Adrenal insufficiency [Recovered/Resolved]
  - Growth failure [Recovered/Resolved]
  - Drug interaction [Recovered/Resolved]
  - Adverse event [Unknown]
